FAERS Safety Report 7007431-4 (Version None)
Quarter: 2010Q3

REPORT INFORMATION
  Report Type: 
  Country: None (occurrence: None)
  Receive Date: 20100922
  Receipt Date: 20100913
  Transmission Date: 20110219
  Serious: Yes (Hospitalization)
  Sender: FDA-Public Use
  Company Number: AT-AMGEN-QUU425574

PATIENT
  Sex: Female

DRUGS (2)
  1. ENBREL [Suspect]
     Indication: ANKYLOSING SPONDYLITIS
     Route: 058
     Dates: start: 20070101, end: 20100501
  2. ENBREL [Suspect]
     Route: 058
     Dates: start: 20100801

REACTIONS (3)
  - ANKYLOSING SPONDYLITIS [None]
  - DIVERTICULITIS [None]
  - PERIDIVERTICULAR ABSCESS [None]
